FAERS Safety Report 20088718 (Version 2)
Quarter: 2021Q4

REPORT INFORMATION
  Report Type: Spontaneous
  Country: US (occurrence: US)
  Receive Date: 20211119
  Receipt Date: 20211202
  Transmission Date: 20220303
  Serious: Yes (Other)
  Sender: FDA-Public Use
  Company Number: US-drreddys-SPO/USA/21/0143688

PATIENT
  Age: 17 Year
  Sex: Female

DRUGS (1)
  1. ZENATANE [Suspect]
     Active Substance: ISOTRETINOIN
     Indication: Product used for unknown indication
     Dosage: RMA ISSUE DATE: 02 JULY 2021 1:26:27 PM, 05 AUGUST 2021 1:56:48 PM,06 SEPTEMBER 2021 1:12:38 PM,11 O
     Dates: start: 20210702, end: 20211108

REACTIONS (2)
  - Panic attack [Recovered/Resolved]
  - Pregnancy test false positive [Unknown]

NARRATIVE: CASE EVENT DATE: 20211109
